FAERS Safety Report 4789804-3 (Version None)
Quarter: 2005Q4

REPORT INFORMATION
  Report Type: 
  Country: None (occurrence: None)
  Receive Date: 20051006
  Receipt Date: 20050922
  Transmission Date: 20060501
  Serious: Yes (Other)
  Sender: FDA-Public Use
  Company Number: CH-GLAXOSMITHKLINE-B0395206A

PATIENT
  Age: 65 Year
  Sex: Female

DRUGS (1)
  1. AUGMENTIN [Suspect]
     Indication: SYSTEMIC ANTIBACTERIAL THERAPY
     Dosage: 1G TWICE PER DAY
     Route: 048
     Dates: start: 20050906, end: 20050907

REACTIONS (2)
  - BRONCHOSPASM [None]
  - DYSPNOEA [None]
